FAERS Safety Report 13643281 (Version 1)
Quarter: 2017Q2

REPORT INFORMATION
  Report Type: Spontaneous
  Country: US (occurrence: US)
  Receive Date: 20170612
  Receipt Date: 20170612
  Transmission Date: 20170830
  Serious: No
  Sender: FDA-Public Use
  Company Number: US-LEXICON PHARMACEUTICALS, INC-17-1606-00243

PATIENT
  Age: 63 Year
  Sex: Female

DRUGS (12)
  1. FISH OIL [Concomitant]
     Active Substance: FISH OIL
  2. CALCIUM [Concomitant]
     Active Substance: CALCIUM
  3. ASPIRIN. [Concomitant]
     Active Substance: ASPIRIN
  4. CREON [Concomitant]
     Active Substance: PANCRELIPASE AMYLASE\PANCRELIPASE LIPASE\PANCRELIPASE PROTEASE
  5. TOPROL XL [Concomitant]
     Active Substance: METOPROLOL SUCCINATE
  6. LYRICA [Concomitant]
     Active Substance: PREGABALIN
  7. SYNTHROID [Concomitant]
     Active Substance: LEVOTHYROXINE SODIUM
  8. SANDOSTATIN [Concomitant]
     Active Substance: OCTREOTIDE ACETATE
  9. NOVOLOG [Concomitant]
     Active Substance: INSULIN ASPART
  10. TELOTRISTAT ETHYL [Suspect]
     Active Substance: TELOTRISTAT ETHYL
     Indication: CARCINOID TUMOUR OF THE SMALL BOWEL
     Route: 048
     Dates: start: 20170413
  11. NORCO [Concomitant]
     Active Substance: ACETAMINOPHEN\HYDROCODONE BITARTRATE
  12. COMPAZINE [Concomitant]
     Active Substance: PROCHLORPERAZINE MALEATE

REACTIONS (1)
  - Nausea [Recovered/Resolved]

NARRATIVE: CASE EVENT DATE: 20170427
